FAERS Safety Report 23555167 (Version 1)
Quarter: 2024Q1

REPORT INFORMATION
  Report Type: Spontaneous
  Country: US (occurrence: US)
  Receive Date: 20240222
  Receipt Date: 20240222
  Transmission Date: 20240410
  Serious: No
  Sender: FDA-Public Use
  Company Number: US-ELI_LILLY_AND_COMPANY-US202402011425

PATIENT
  Age: 33 Year
  Sex: Female

DRUGS (2)
  1. BASAGLAR [Suspect]
     Active Substance: INSULIN GLARGINE
     Indication: Gestational diabetes
     Dosage: UNK, UNKNOWN
     Route: 065
     Dates: start: 20240131
  2. FIASP [Concomitant]
     Active Substance: INSULIN ASPART
     Indication: Product used for unknown indication
     Dosage: UNK
     Dates: start: 20240131

REACTIONS (6)
  - Dry throat [Unknown]
  - Pharyngeal swelling [Unknown]
  - Eye pruritus [Unknown]
  - Throat irritation [Unknown]
  - Maternal exposure during pregnancy [Unknown]
  - Pruritus [Unknown]

NARRATIVE: CASE EVENT DATE: 20240131
